FAERS Safety Report 8922542 (Version 1)
Quarter: 2012Q4

REPORT INFORMATION
  Report Type: 
  Country: NO (occurrence: NO)
  Receive Date: 20121123
  Receipt Date: 20121123
  Transmission Date: 20130627
  Serious: Yes (Hospitalization)
  Sender: FDA-Public Use
  Company Number: PHHY2012NO067330

PATIENT
  Age: 10 Year
  Sex: Male
  Weight: 29 kg

DRUGS (2)
  1. ACZ885 [Suspect]
     Indication: AUTOINFLAMMATORY DISEASE
     Dosage: 150 mg, every four weeks
     Route: 058
     Dates: start: 20110901
  2. ACZ885 [Suspect]
     Indication: PYREXIA

REACTIONS (6)
  - Cervical root pain [Recovering/Resolving]
  - Musculoskeletal stiffness [Not Recovered/Not Resolved]
  - Scoliosis [Unknown]
  - Myalgia [Recovering/Resolving]
  - Neck deformity [Recovering/Resolving]
  - Neck pain [Recovering/Resolving]
